FAERS Safety Report 9984175 (Version 2)
Quarter: 2014Q1

REPORT INFORMATION
  Report Type: Report from Study
  Country: US (occurrence: US)
  Receive Date: 20140307
  Receipt Date: 20140307
  Transmission Date: 20141002
  Serious: Yes (Other)
  Sender: FDA-Public Use
  Company Number: US-ABBVIE-13P-163-1179679-00

PATIENT
  Age: 29 Year
  Sex: Female

DRUGS (4)
  1. HUMIRA [Suspect]
     Indication: CROHN^S DISEASE
     Dates: start: 20110221, end: 20110221
  2. HUMIRA [Suspect]
     Dates: start: 20110307, end: 20110307
  3. HUMIRA [Suspect]
     Dates: start: 20110321
  4. HUMIRA [Suspect]
     Dates: start: 20131223, end: 20131223

REACTIONS (1)
  - Crohn^s disease [Unknown]
